FAERS Safety Report 20233738 (Version 1)
Quarter: 2021Q4

REPORT INFORMATION
  Report Type: Spontaneous
  Country: US (occurrence: US)
  Receive Date: 20211227
  Receipt Date: 20211227
  Transmission Date: 20220303
  Serious: No
  Sender: FDA-Public Use
  Company Number: US-SA-SAC20211223001388

PATIENT
  Sex: Male
  Weight: 102 kg

DRUGS (1)
  1. LUMIZYME [Suspect]
     Active Substance: ALGLUCOSIDASE ALFA
     Indication: Glycogen storage disease type II
     Dosage: 2350 MG, QOW (SINGLE DOSE VIAL)
     Route: 042
     Dates: start: 202111

REACTIONS (1)
  - Weight decreased [Unknown]
